FAERS Safety Report 17308153 (Version 1)
Quarter: 2020Q1

REPORT INFORMATION
  Report Type: Spontaneous
  Country: US (occurrence: US)
  Receive Date: 20200106
  Receipt Date: 20200106
  Transmission Date: 20200409
  Serious: No
  Sender: FDA-Public Use
  Company Number: None

PATIENT
  Age: 48 Year
  Sex: Female
  Weight: 102.51 kg

DRUGS (1)
  1. MAGNESIUM SULFATE (MAGNESIUM SO4 8MEQ/100ML INJ,BAG) [Suspect]
     Active Substance: MAGNESIUM SULFATE
     Indication: HYPOMAGNESAEMIA
     Route: 042
     Dates: start: 20190325, end: 20190325

REACTIONS (5)
  - Hypomagnesaemia [None]
  - Apnoea [None]
  - Myasthenia gravis [None]
  - Respiratory distress [None]
  - Seizure [None]
